FAERS Safety Report 16254052 (Version 4)
Quarter: 2019Q2

REPORT INFORMATION
  Report Type: Report from Study
  Country: US (occurrence: US)
  Receive Date: 20190430
  Receipt Date: 20190626
  Transmission Date: 20190711
  Serious: Yes (Other)
  Sender: FDA-Public Use
  Company Number: US-B.I. PHARMACEUTICALS,INC./RIDGEFIELD-2018-BI-061851

PATIENT
  Sex: Female

DRUGS (7)
  1. OFEV [Suspect]
     Active Substance: NINTEDANIB
     Route: 048
     Dates: start: 20181228
  2. OFEV [Suspect]
     Active Substance: NINTEDANIB
     Route: 048
     Dates: end: 20190405
  3. OFEV [Suspect]
     Active Substance: NINTEDANIB
     Indication: IDIOPATHIC PULMONARY FIBROSIS
     Route: 048
     Dates: start: 20181126
  4. CALCIUM [Suspect]
     Active Substance: CALCIUM
     Indication: PRODUCT USED FOR UNKNOWN INDICATION
     Route: 065
  5. CALTRATE [Concomitant]
     Active Substance: CALCIUM CARBONATE
     Indication: PRODUCT USED FOR UNKNOWN INDICATION
     Dosage: UNSPECIFIED;0 REFILL(S)
     Route: 048
     Dates: start: 20180913
  6. CENTRUM SILVER [Concomitant]
     Active Substance: MINERALS\VITAMINS
     Indication: PRODUCT USED FOR UNKNOWN INDICATION
     Dosage: THERAPEUTIC MULTIPLE VITAMINS WITH MINERALS TABLET; PO UNSPECIFIED; 0 REFILL(S);
     Route: 048
  7. PREDNISONE. [Concomitant]
     Active Substance: PREDNISONE
     Indication: PRODUCT USED FOR UNKNOWN INDICATION
     Dosage: DISPENSE:30 UNSPECIFIED;30 DAYS SUPPLY 1 REFILL(S);
     Route: 048
     Dates: start: 20180913

REACTIONS (29)
  - Weight decreased [Recovered/Resolved]
  - Hyperhidrosis [Unknown]
  - Joint swelling [Recovered/Resolved]
  - Vomiting [Recovered/Resolved]
  - Constipation [Not Recovered/Not Resolved]
  - Feeling abnormal [Unknown]
  - Postoperative wound infection [Not Recovered/Not Resolved]
  - Diarrhoea [Not Recovered/Not Resolved]
  - Dyspepsia [Unknown]
  - Abdominal pain upper [Recovered/Resolved]
  - Abdominal discomfort [Unknown]
  - Peripheral swelling [Not Recovered/Not Resolved]
  - Epistaxis [Not Recovered/Not Resolved]
  - Wheezing [Unknown]
  - Decreased appetite [Recovered/Resolved]
  - Malaise [Not Recovered/Not Resolved]
  - Dyspnoea [Unknown]
  - Vomiting [Not Recovered/Not Resolved]
  - Gastrointestinal disorder [Unknown]
  - Cough [Not Recovered/Not Resolved]
  - Influenza [Not Recovered/Not Resolved]
  - Ageusia [Not Recovered/Not Resolved]
  - Rhinorrhoea [Not Recovered/Not Resolved]
  - Taste disorder [Not Recovered/Not Resolved]
  - Epistaxis [Unknown]
  - Feeding disorder [Recovered/Resolved]
  - Nasopharyngitis [Not Recovered/Not Resolved]
  - Skin laxity [Not Recovered/Not Resolved]
  - Sneezing [Not Recovered/Not Resolved]
